FAERS Safety Report 23994058 (Version 1)
Quarter: 2024Q2

REPORT INFORMATION
  Report Type: Spontaneous
  Country: CN (occurrence: CN)
  Receive Date: 20240620
  Receipt Date: 20240620
  Transmission Date: 20240716
  Serious: Yes (Other)
  Sender: FDA-Public Use
  Company Number: CN-SA-SAC20240614000985

PATIENT
  Age: 75 Year
  Sex: Male
  Weight: 75 kg

DRUGS (1)
  1. ENOXAPARIN SODIUM [Suspect]
     Active Substance: ENOXAPARIN SODIUM
     Indication: Cerebral infarction
     Dosage: 0.6 ML, QD, IH
     Route: 058
     Dates: start: 20240530, end: 20240601

REACTIONS (8)
  - Pyrexia [Recovered/Resolved]
  - Rash macular [Recovered/Resolved]
  - Dry skin [Unknown]
  - Drug eruption [Recovered/Resolved]
  - Papule [Unknown]
  - Erythema [Unknown]
  - Pruritus [Unknown]
  - Urticaria [Recovered/Resolved]

NARRATIVE: CASE EVENT DATE: 20240530
